FAERS Safety Report 9309056 (Version 2)
Quarter: 2013Q2

REPORT INFORMATION
  Report Type: Spontaneous
  Country: JP (occurrence: JP)
  Receive Date: 20130524
  Receipt Date: 20130624
  Transmission Date: 20140414
  Serious: Yes (Other)
  Sender: FDA-Public Use
  Company Number: CHNY2013JP001187

PATIENT
  Age: 34 Year
  Sex: Male

DRUGS (1)
  1. NICOTINELL TTS [Suspect]
     Indication: SMOKING CESSATION THERAPY
     Dosage: UNK, UNK
     Route: 062
     Dates: start: 20130521, end: 20130521

REACTIONS (2)
  - Anaphylactoid reaction [Recovered/Resolved]
  - Dyspnoea [Recovered/Resolved]
